FAERS Safety Report 16252020 (Version 2)
Quarter: 2019Q2

REPORT INFORMATION
  Report Type: Spontaneous
  Country: JP (occurrence: JP)
  Receive Date: 20190429
  Receipt Date: 20190521
  Transmission Date: 20190711
  Serious: Yes (Other)
  Sender: FDA-Public Use
  Company Number: JP-009507513-1904JPN003141J

PATIENT
  Age: 71 Year
  Sex: Male

DRUGS (2)
  1. ERELSA TABLETS 50MG [Suspect]
     Active Substance: ELBASVIR
     Indication: HEPATIC CIRRHOSIS
     Dosage: 50 MILLIGRAM, QD
     Route: 048
     Dates: start: 20190319, end: 20190513
  2. GRAZYNA TABLETS 50MG [Suspect]
     Active Substance: GRAZOPREVIR
     Indication: HEPATIC CIRRHOSIS
     Dosage: 100 MILLIGRAM, QD
     Route: 048
     Dates: start: 20190319, end: 20190513

REACTIONS (1)
  - Ascites [Recovering/Resolving]

NARRATIVE: CASE EVENT DATE: 20190416
